FAERS Safety Report 4811484-9 (Version None)
Quarter: 2005Q4

REPORT INFORMATION
  Report Type: 
  Country: None (occurrence: None)
  Receive Date: 20051027
  Receipt Date: 20051011
  Transmission Date: 20060501
  Serious: Yes (Life-Threatening)
  Sender: FDA-Public Use
  Company Number: GBWYE046611OCT05

PATIENT
  Age: 40 Year
  Sex: Male
  Weight: 111 kg

DRUGS (6)
  1. ENBREL [Suspect]
     Indication: RHEUMATOID ARTHRITIS
     Dosage: 25 MG, FREQUENCY UNKNOWN
     Route: 058
     Dates: start: 20040708, end: 20050428
  2. FOLIC ACID [Concomitant]
     Indication: RHEUMATOID ARTHRITIS
     Dosage: 5 MG
     Route: 048
  3. AMITRIPTYLINE HCL [Concomitant]
     Dosage: 75 MG, FREQUENCY UNKNOWN
     Route: 048
  4. TRAMADOL [Concomitant]
     Dosage: AS REQUIRED
     Route: 048
  5. NEXIUM [Concomitant]
     Dosage: UNKNOWN
     Route: 048
     Dates: start: 20041101
  6. METHOTREXATE [Concomitant]

REACTIONS (5)
  - ASCITES [None]
  - OEDEMA PERIPHERAL [None]
  - ORTHOPNOEA [None]
  - PERICARDITIS [None]
  - PLEURAL EFFUSION [None]
